FAERS Safety Report 8805209 (Version 2)
Quarter: 2014Q2

REPORT INFORMATION
  Report Type: Spontaneous
  Country: US (occurrence: US)
  Receive Date: 20120924
  Receipt Date: 20131021
  Transmission Date: 20141212
  Serious: Yes (Other)
  Sender: FDA-Public Use
  Company Number: US-ASTRAZENECA-2012SE71106

PATIENT
  Age: 69 Year
  Sex: Male

DRUGS (1)
  1. SYMBICORT PMDI [Suspect]
     Dosage: UNKNOWN DOSE, UNKNOWN FREQUENCY
     Route: 055

REACTIONS (9)
  - Pulmonary oedema [Unknown]
  - Dyspnoea [Unknown]
  - Pulmonary mass [Unknown]
  - Hypoacusis [Unknown]
  - Red blood cell abnormality [Unknown]
  - Prostatic disorder [Unknown]
  - Sleep disorder due to general medical condition, insomnia type [Unknown]
  - Insomnia [Unknown]
  - Drug dose omission [Unknown]
